FAERS Safety Report 16238467 (Version 2)
Quarter: 2019Q4

REPORT INFORMATION
  Report Type: Spontaneous
  Country: CO (occurrence: CO)
  Receive Date: 20190425
  Receipt Date: 20191009
  Transmission Date: 20200122
  Serious: Yes (Death, Hospitalization, Other)
  Sender: FDA-Public Use
  Company Number: CO-PFIZER INC-2019176456

PATIENT
  Age: 43 Year
  Sex: Female

DRUGS (1)
  1. SUTENT [Suspect]
     Active Substance: SUNITINIB MALATE
     Indication: RENAL CANCER METASTATIC
     Dosage: 50 MG, UNK
     Route: 048
     Dates: start: 201901, end: 2019

REACTIONS (4)
  - Death [Fatal]
  - Dysstasia [Not Recovered/Not Resolved]
  - Gait disturbance [Not Recovered/Not Resolved]
  - Spinal pain [Unknown]

NARRATIVE: CASE EVENT DATE: 2019
